FAERS Safety Report 19265986 (Version 1)
Quarter: 2021Q2

REPORT INFORMATION
  Report Type: Spontaneous
  Country: PL (occurrence: PL)
  Receive Date: 20210518
  Receipt Date: 20210518
  Transmission Date: 20210717
  Serious: Yes (Other)
  Sender: FDA-Public Use
  Company Number: PL-CELLTRION INC.-2021PL006420

PATIENT

DRUGS (6)
  1. TRASTUZUMAB (UNKNOWN) [Suspect]
     Active Substance: TRASTUZUMAB
     Indication: BREAST CANCER
     Dosage: UNK
     Route: 065
  2. PACLITAXEL. [Concomitant]
     Active Substance: PACLITAXEL
     Dosage: UNK
  3. CAPECITABINE;VINORELBINE [Concomitant]
     Dosage: UNK
  4. CYCLOPHOSPHAMIDE;DOXORUBICIN [Concomitant]
     Active Substance: CYCLOPHOSPHAMIDE\DOXORUBICIN
  5. CISPLATIN;GEMCITABINE [Concomitant]
     Dosage: UNK
  6. CISPLATIN. [Concomitant]
     Active Substance: CISPLATIN
     Dosage: UNK

REACTIONS (2)
  - Breast cancer metastatic [Recovered/Resolved]
  - Therapy non-responder [Unknown]
